FAERS Safety Report 5358734-0 (Version None)
Quarter: 2007Q2

REPORT INFORMATION
  Report Type: 
  Country: None (occurrence: None)
  Receive Date: 20070615
  Receipt Date: 20070607
  Transmission Date: 20071010
  Serious: Yes (Hospitalization)
  Sender: FDA-Public Use
  Company Number: GB-ROCHE-501831

PATIENT
  Age: 62 Year
  Sex: Female

DRUGS (2)
  1. XELODA [Suspect]
     Indication: BREAST CANCER
     Route: 065
  2. LITHIUM CARBONATE [Interacting]
     Indication: DEPRESSION
     Route: 065

REACTIONS (2)
  - ANTIPSYCHOTIC DRUG LEVEL INCREASED [None]
  - DRUG INTERACTION [None]
